FAERS Safety Report 26179313 (Version 1)
Quarter: 2025Q4

REPORT INFORMATION
  Report Type: Spontaneous
  Country: US (occurrence: None)
  Receive Date: 20251218
  Receipt Date: 20251218
  Transmission Date: 20260118
  Serious: Yes (unspecified)
  Sender: FDA-CTU
  Company Number: None

PATIENT
  Age: 83 Year
  Sex: Male

DRUGS (1)
  1. ERIVEDGE [Suspect]
     Active Substance: VISMODEGIB
     Indication: Skin cancer
     Dosage: FREQUENCY : DAILY;
     Route: 048
     Dates: start: 20251007

REACTIONS (2)
  - Alopecia [None]
  - Inappropriate schedule of product administration [None]

NARRATIVE: CASE EVENT DATE: 20251128
